FAERS Safety Report 5684027-8 (Version None)
Quarter: 2008Q1

REPORT INFORMATION
  Report Type: 
  Country: None (occurrence: None)
  Receive Date: 20080328
  Receipt Date: 20080320
  Transmission Date: 20080703
  Serious: Yes (Death)
  Sender: FDA-Public Use
  Company Number: AT-ROCHE-554682

PATIENT
  Age: 67 Year
  Sex: Female

DRUGS (6)
  1. CAPECITABINE [Suspect]
     Dosage: FREQUENCY REPORTED AS 'BID FOR 7 DAYS'.
     Route: 048
     Dates: start: 20071119
  2. BEVACIZUMAB [Suspect]
     Route: 042
     Dates: start: 20071119
  3. OXALIPLATIN [Suspect]
     Route: 042
     Dates: start: 20071119
  4. CO-DILATREND [Concomitant]
     Dosage: REPORTED AS 'CODILANTREND'. START DATE REPORTED AS 'BEFORE STUDY'.
  5. FOSAMAX [Concomitant]
     Dosage: START DATE REPOTRED AS 'BEFORE STUDY'.
  6. DIABETEX [Concomitant]
     Dosage: START DATE REPORTED AS 'BEFORE STUDY'.

REACTIONS (3)
  - HEPATIC FAILURE [None]
  - MULTI-ORGAN FAILURE [None]
  - RENAL FAILURE [None]
